FAERS Safety Report 16463144 (Version 1)
Quarter: 2019Q2

REPORT INFORMATION
  Report Type: Report from Study
  Country: US (occurrence: US)
  Receive Date: 20190621
  Receipt Date: 20190621
  Transmission Date: 20190711
  Serious: Yes (Hospitalization, Other)
  Sender: FDA-Public Use
  Company Number: US-BAYER-2019-115057

PATIENT
  Age: 14 Year
  Sex: Female
  Weight: 60.9 kg

DRUGS (1)
  1. APAP [Suspect]
     Active Substance: ACETAMINOPHEN
     Dosage: 1300 MG

REACTIONS (1)
  - Analgesic drug level above therapeutic [None]
